FAERS Safety Report 15757013 (Version 4)
Quarter: 2019Q2

REPORT INFORMATION
  Report Type: Report from Study
  Country: US (occurrence: US)
  Receive Date: 20181224
  Receipt Date: 20190418
  Transmission Date: 20190711
  Serious: Yes (Other)
  Sender: FDA-Public Use
  Company Number: US-GILEAD-2018-0380887

PATIENT
  Age: 25 Year
  Sex: Female

DRUGS (5)
  1. EMTRICITABINE/TENOFOVIR ALAFENAMIDE [Suspect]
     Active Substance: EMTRICITABINE\TENOFOVIR
     Dosage: 1 DF, QD, PRIOR TO CONCEPTION AND 1ST AND 2ND TRIMESTER
     Route: 048
     Dates: start: 20181008
  2. TIVICAY [Suspect]
     Active Substance: DOLUTEGRAVIR SODIUM
     Indication: HIV INFECTION
     Dosage: 1ST AND 2ND TRIMESTERS
     Route: 065
  3. NORVIR [Suspect]
     Active Substance: RITONAVIR
     Indication: HIV INFECTION
     Dosage: 1ST AND 2ND TRIMETSERS
     Route: 065
     Dates: start: 20181008
  4. REYATAZ [Suspect]
     Active Substance: ATAZANAVIR SULFATE
     Indication: HIV INFECTION
     Dosage: 1ST AND 2ND TRIMESTERS
     Route: 065
     Dates: start: 20181008
  5. EMTRICITABINE/TENOFOVIR ALAFENAMIDE [Suspect]
     Active Substance: EMTRICITABINE\TENOFOVIR
     Indication: HIV INFECTION
     Dosage: 1 DF, QD, PRIOR TO CONCEPTION AND 1ST AND 2ND TRIMESTER
     Route: 048

REACTIONS (4)
  - Abortion spontaneous [Recovered/Resolved]
  - Product dose omission [Unknown]
  - Vomiting [Unknown]
  - Maternal exposure during pregnancy [Recovered/Resolved]

NARRATIVE: CASE EVENT DATE: 20180804
